FAERS Safety Report 6044336-X (Version None)
Quarter: 2009Q1

REPORT INFORMATION
  Report Type: 
  Country: None (occurrence: None)
  Receive Date: 20090120
  Receipt Date: 20090109
  Transmission Date: 20090719
  Serious: Yes (Other)
  Sender: FDA-Public Use
  Company Number: US-JNJFOC-20081204339

PATIENT
  Sex: Female

DRUGS (2)
  1. REMICADE [Suspect]
     Route: 042
  2. REMICADE [Suspect]
     Indication: RHEUMATOID ARTHRITIS
     Dosage: 2 INFUSIONS ON UNSPECIFIED DATES IN 2008
     Route: 042

REACTIONS (6)
  - CARDIAC FLUTTER [None]
  - CHILLS [None]
  - HEART RATE IRREGULAR [None]
  - INFLUENZA [None]
  - PSORIASIS [None]
  - RHEUMATOID ARTHRITIS [None]
